FAERS Safety Report 25146292 (Version 2)
Quarter: 2025Q2

REPORT INFORMATION
  Report Type: Other
  Country: CA (occurrence: CA)
  Receive Date: 20250401
  Receipt Date: 20250507
  Transmission Date: 20250716
  Serious: Yes (Other)
  Sender: NOVARTIS
  Company Number: CA-002147023-NVSC2024CA251014

PATIENT
  Age: 34 Year

DRUGS (2)
  1. KESIMPTA [Suspect]
     Active Substance: OFATUMUMAB
     Indication: Product used for unknown indication
     Route: 065
  2. DEMANNOSE [Concomitant]
     Active Substance: DEMANNOSE
     Indication: Urinary tract infection
     Route: 065

REACTIONS (1)
  - Lower respiratory tract infection [Unknown]
